FAERS Safety Report 5312017-3 (Version None)
Quarter: 2007Q2

REPORT INFORMATION
  Report Type: 
  Country: None (occurrence: None)
  Receive Date: 20070430
  Receipt Date: 20060517
  Transmission Date: 20071010
  Serious: No
  Sender: FDA-Public Use
  Company Number: 2006UW09676

PATIENT
  Sex: Female

DRUGS (3)
  1. NEXIUM [Suspect]
     Indication: GASTROOESOPHAGEAL REFLUX DISEASE
     Route: 048
  2. AMBIEN [Concomitant]
  3. FOSAMAX [Concomitant]

REACTIONS (3)
  - BREATH SOUNDS ABNORMAL [None]
  - DYSPNOEA [None]
  - OESOPHAGEAL DISORDER [None]
